FAERS Safety Report 8236301-9 (Version None)
Quarter: 2012Q1

REPORT INFORMATION
  Report Type: 
  Country: None (occurrence: None)
  Receive Date: 20120309
  Receipt Date: 20110517
  Transmission Date: 20120608
  Serious: Yes (Other)
  Sender: FDA-Public Use
  Company Number: PHHY2010US88213

PATIENT
  Age: 39 Year
  Sex: Female
  Weight: 95.3 kg

DRUGS (3)
  1. EXTAVIA [Suspect]
     Indication: MULTIPLE SCLEROSIS RELAPSE
     Dosage: 0.25 MG, SUBCUTANEOUS
     Route: 058
     Dates: start: 20101001, end: 20101130
  2. PROVIGIL [Concomitant]
  3. TOPAMAX [Concomitant]

REACTIONS (3)
  - ASPARTATE AMINOTRANSFERASE INCREASED [None]
  - HEPATIC ENZYME INCREASED [None]
  - ALANINE AMINOTRANSFERASE INCREASED [None]
